FAERS Safety Report 4914743-4 (Version None)
Quarter: 2006Q1

REPORT INFORMATION
  Report Type: 
  Country: None (occurrence: None)
  Receive Date: 20060216
  Receipt Date: 20051001
  Transmission Date: 20060701
  Serious: Yes (Other)
  Sender: FDA-Public Use
  Company Number: PR-MERCK-0510USA00786

PATIENT
  Age: 51 Year
  Sex: Male
  Weight: 98 kg

DRUGS (5)
  1. VIOXX [Suspect]
     Indication: ARTHRITIS
     Route: 048
     Dates: start: 20020101, end: 20030101
  2. VIOXX [Suspect]
     Route: 048
     Dates: start: 20020101, end: 20030101
  3. VIOXX [Suspect]
     Indication: MYALGIA
     Route: 048
     Dates: start: 20020101, end: 20030101
  4. VIOXX [Suspect]
     Route: 048
     Dates: start: 20020101, end: 20030101
  5. ASPIRIN [Concomitant]
     Route: 065

REACTIONS (11)
  - ANAL HAEMORRHAGE [None]
  - BALANCE DISORDER [None]
  - COLONIC POLYP [None]
  - DIZZINESS [None]
  - GASTROOESOPHAGEAL REFLUX DISEASE [None]
  - IRRITABLE BOWEL SYNDROME [None]
  - LACUNAR INFARCTION [None]
  - MYOCARDIAL INFARCTION [None]
  - OESOPHAGITIS [None]
  - PULMONARY EMBOLISM [None]
  - RECTAL HAEMORRHAGE [None]
